FAERS Safety Report 19554291 (Version 1)
Quarter: 2021Q3

REPORT INFORMATION
  Report Type: Spontaneous
  Country: US (occurrence: US)
  Receive Date: 20210715
  Receipt Date: 20210715
  Transmission Date: 20211014
  Serious: Yes (Other)
  Sender: FDA-Public Use
  Company Number: US-GLENMARK PHARMACEUTICALS-2021GMK065097

PATIENT

DRUGS (1)
  1. RANITIDINE HYDROCHLORIDE. [Suspect]
     Active Substance: RANITIDINE HYDROCHLORIDE
     Indication: MASTOCYTOSIS
     Dosage: UNK
     Dates: start: 200801, end: 201901

REACTIONS (2)
  - Prostate cancer [Unknown]
  - Bladder cancer [Unknown]

NARRATIVE: CASE EVENT DATE: 20100101
